FAERS Safety Report 12288558 (Version 1)
Quarter: 2016Q2

REPORT INFORMATION
  Report Type: Spontaneous
  Country: GB (occurrence: GB)
  Receive Date: 20160421
  Receipt Date: 20160421
  Transmission Date: 20160815
  Serious: Yes (Death)
  Sender: FDA-Public Use
  Company Number: GB-009507513-1604GBR012633

PATIENT
  Age: 43 Year
  Sex: Female

DRUGS (4)
  1. PREZISTA [Concomitant]
     Active Substance: DARUNAVIR ETHANOLATE
  2. RALTEGRAVIR POTASSIUM [Suspect]
     Active Substance: RALTEGRAVIR POTASSIUM
     Route: 048
  3. TENOFOVIR [Concomitant]
     Active Substance: TENOFOVIR
  4. NORVIR [Concomitant]
     Active Substance: RITONAVIR

REACTIONS (1)
  - Death [Fatal]

NARRATIVE: CASE EVENT DATE: 20160418
